FAERS Safety Report 5817323-1 (Version None)
Quarter: 2008Q3

REPORT INFORMATION
  Report Type: 
  Country: None (occurrence: None)
  Receive Date: 20080715
  Receipt Date: 20080702
  Transmission Date: 20090109
  Serious: Yes (Death)
  Sender: FDA-Public Use
  Company Number: 2008017922

PATIENT

DRUGS (3)
  1. CETIRIZINE HCL [Suspect]
     Indication: NEURODERMATITIS
  2. SULTAMICILLIN (SULTAMICILLIN) [Concomitant]
  3. DEQUALINIUM (DEQUALINIUM) [Concomitant]

REACTIONS (4)
  - DYSMORPHISM [None]
  - HYPERTELORISM OF ORBIT [None]
  - LOW SET EARS [None]
  - MATERNAL DRUGS AFFECTING FOETUS [None]
